FAERS Safety Report 5057257-6 (Version None)
Quarter: 2006Q3

REPORT INFORMATION
  Report Type: 
  Country: None (occurrence: None)
  Receive Date: 20060721
  Receipt Date: 20050707
  Transmission Date: 20061208
  Serious: No
  Sender: FDA-Public Use
  Company Number: US-GLAXOSMITHKLINE-A0565333A

PATIENT
  Age: 79 Year
  Sex: Female

DRUGS (5)
  1. AVANDIA [Suspect]
     Dosage: 8MG PER DAY
     Route: 048
  2. GLYBURIDE [Concomitant]
  3. METOPROLOL [Concomitant]
     Route: 065
  4. LIPITOR [Concomitant]
  5. FUROSEMIDE [Concomitant]
     Route: 065

REACTIONS (3)
  - EYE SWELLING [None]
  - SWELLING FACE [None]
  - WEIGHT INCREASED [None]
